FAERS Safety Report 6122085-7 (Version None)
Quarter: 2009Q1

REPORT INFORMATION
  Report Type: 
  Country: None (occurrence: None)
  Receive Date: 20090316
  Receipt Date: 20090316
  Transmission Date: 20090719
  Serious: Yes (Other)
  Sender: FDA-Public Use
  Company Number: None

PATIENT
  Age: 74 Year
  Sex: Male
  Weight: 80.7403 kg

DRUGS (1)
  1. LIPITOR [Suspect]
     Indication: BLOOD CHOLESTEROL INCREASED
     Dosage: 40 MG ONE A DAY PO
     Route: 048
     Dates: start: 20060806, end: 20080303

REACTIONS (10)
  - AMNESIA [None]
  - DECREASED INTEREST [None]
  - DEPRESSION [None]
  - FEELING ABNORMAL [None]
  - GENERAL PHYSICAL HEALTH DETERIORATION [None]
  - MENTAL IMPAIRMENT [None]
  - MOVEMENT DISORDER [None]
  - MYALGIA [None]
  - SOCIAL AVOIDANT BEHAVIOUR [None]
  - WEIGHT BEARING DIFFICULTY [None]
